FAERS Safety Report 8386562-0 (Version None)
Quarter: 2012Q2

REPORT INFORMATION
  Report Type: 
  Country: None (occurrence: None)
  Receive Date: 20120525
  Receipt Date: 20110805
  Transmission Date: 20120825
  Serious: No
  Sender: FDA-Public Use
  Company Number: US-GLAXOSMITHKLINE-A0939909A

PATIENT
  Age: 33 Year
  Sex: Female
  Weight: 58 kg

DRUGS (3)
  1. VERAMYST [Suspect]
     Indication: RHINITIS ALLERGIC
     Dosage: 2SPR PER DAY
     Route: 045
     Dates: start: 20110101
  2. ORTHO TRI-CYCLEN LO [Concomitant]
  3. ALLEGRA-D 12 HOUR [Concomitant]

REACTIONS (7)
  - NAUSEA [None]
  - DIZZINESS [None]
  - SINUSITIS [None]
  - PRODUCT QUALITY ISSUE [None]
  - SINUS CONGESTION [None]
  - DRUG INEFFECTIVE [None]
  - HEADACHE [None]
